FAERS Safety Report 13111166 (Version 2)
Quarter: 2017Q1

REPORT INFORMATION
  Report Type: Spontaneous
  Country: US (occurrence: US)
  Receive Date: 20170112
  Receipt Date: 20170227
  Transmission Date: 20170428
  Serious: Yes (Disabling)
  Sender: FDA-Public Use
  Company Number: US-ALLERGAN-1701046US

PATIENT
  Age: 59 Year
  Sex: Female

DRUGS (4)
  1. CANASA [Suspect]
     Active Substance: MESALAMINE
     Indication: COLITIS ULCERATIVE
     Dosage: UNK
     Route: 048
     Dates: start: 201701
  2. CANASA [Suspect]
     Active Substance: MESALAMINE
     Indication: IRRITABLE BOWEL SYNDROME
  3. CANASA [Suspect]
     Active Substance: MESALAMINE
     Indication: DIVERTICULITIS
     Dosage: UNK
     Route: 048
  4. CANASA [Suspect]
     Active Substance: MESALAMINE
     Indication: INFECTION

REACTIONS (4)
  - Drug dose omission [Unknown]
  - Incorrect route of drug administration [Unknown]
  - Disability [Not Recovered/Not Resolved]
  - Off label use [Unknown]
